FAERS Safety Report 15456993 (Version 1)
Quarter: 2018Q4

REPORT INFORMATION
  Report Type: Report from Study
  Country: FR (occurrence: FR)
  Receive Date: 20181002
  Receipt Date: 20181002
  Transmission Date: 20190204
  Serious: Yes (Other)
  Sender: FDA-Public Use
  Company Number: FR-PFIZER INC-2018279166

PATIENT
  Age: 57 Year
  Sex: Male

DRUGS (3)
  1. ONBREZ [Concomitant]
     Active Substance: INDACATEROL
  2. NIVOLUMAB [Suspect]
     Active Substance: NIVOLUMAB
     Indication: LUNG NEOPLASM MALIGNANT
     Dosage: 3 MG/KG, EVERY 2 WEEKS
     Route: 042
     Dates: start: 20170823
  3. NIVESTIM [Suspect]
     Active Substance: FILGRASTIM

REACTIONS (5)
  - Lung disorder [Unknown]
  - Myalgia [Not Recovered/Not Resolved]
  - Rib fracture [Recovered/Resolved]
  - Neutropenia [Recovered/Resolved]
  - Peripheral sensory neuropathy [Recovered/Resolved]

NARRATIVE: CASE EVENT DATE: 20180101
